FAERS Safety Report 6928101-4 (Version None)
Quarter: 2010Q3

REPORT INFORMATION
  Report Type: 
  Country: None (occurrence: None)
  Receive Date: 20100817
  Receipt Date: 20100805
  Transmission Date: 20110219
  Serious: Yes (Hospitalization)
  Sender: FDA-Public Use
  Company Number: US-GENZYME-CLOF-1000812

PATIENT
  Sex: Male
  Weight: 74 kg

DRUGS (3)
  1. BLINDED CLOFARABINE [Suspect]
     Indication: ACUTE MYELOID LEUKAEMIA
  2. BLINDED PLACEBO [Suspect]
     Indication: ACUTE MYELOID LEUKAEMIA
  3. ARA-C [Suspect]
     Indication: ACUTE MYELOID LEUKAEMIA

REACTIONS (4)
  - ATRIAL FIBRILLATION [None]
  - FEBRILE NEUTROPENIA [None]
  - RENAL FAILURE ACUTE [None]
  - SEPSIS [None]
